FAERS Safety Report 7603333-0 (Version None)
Quarter: 2011Q3

REPORT INFORMATION
  Report Type: 
  Country: None (occurrence: None)
  Receive Date: 20110712
  Receipt Date: 20110629
  Transmission Date: 20111222
  Serious: Yes (Hospitalization)
  Sender: FDA-Public Use
  Company Number: PHHY2011FR58957

PATIENT
  Sex: Female

DRUGS (4)
  1. ASPIRIN [Concomitant]
     Dosage: 75 MG, QD
  2. TEGRETOL [Suspect]
     Indication: FACIAL PAIN
     Dosage: UNK UKN, UNK
     Dates: start: 20110404, end: 20110601
  3. BIPRETERAX [Concomitant]
  4. TENORMIN [Concomitant]

REACTIONS (17)
  - NAUSEA [None]
  - BLOOD ALKALINE PHOSPHATASE INCREASED [None]
  - BLOOD BILIRUBIN INCREASED [None]
  - EOSINOPHILIA [None]
  - DECREASED APPETITE [None]
  - CHROMATURIA [None]
  - CYTOLYTIC HEPATITIS [None]
  - ASPARTATE AMINOTRANSFERASE INCREASED [None]
  - C-REACTIVE PROTEIN INCREASED [None]
  - PYREXIA [None]
  - ANTINUCLEAR ANTIBODY POSITIVE [None]
  - DRY MOUTH [None]
  - MYALGIA [None]
  - GAMMA-GLUTAMYLTRANSFERASE INCREASED [None]
  - WEIGHT DECREASED [None]
  - GENERALISED ERYTHEMA [None]
  - ALANINE AMINOTRANSFERASE INCREASED [None]
